FAERS Safety Report 24558633 (Version 1)
Quarter: 2024Q4

REPORT INFORMATION
  Report Type: Spontaneous
  Country: FR (occurrence: FR)
  Receive Date: 20241029
  Receipt Date: 20241029
  Transmission Date: 20250115
  Serious: Yes (Other)
  Sender: RANBAXY
  Company Number: FR-AFSSAPS-TS2024000973

PATIENT
  Age: 56 Year
  Sex: Male

DRUGS (9)
  1. AZITHROMYCIN [Suspect]
     Active Substance: AZITHROMYCIN
     Indication: Colitis
     Dosage: 1 GRAM, DAILY
     Route: 048
     Dates: start: 20240722, end: 20240731
  2. PHLOROGLUCINOL [Suspect]
     Active Substance: PHLOROGLUCINOL
     Indication: Product used for unknown indication
     Dosage: 2 DOSAGE FORM, TID
     Route: 040
     Dates: start: 20240719, end: 20240720
  3. IPRATROPIUM [Suspect]
     Active Substance: IPRATROPIUM
     Indication: Product used for unknown indication
     Dosage: UNK
     Route: 055
     Dates: start: 20240719, end: 20240722
  4. POTASSIUM [Suspect]
     Active Substance: POTASSIUM
     Indication: Product used for unknown indication
     Dosage: 600 MILLIGRAM, TID
     Route: 048
     Dates: start: 20240720, end: 20240723
  5. CEFTRIAXONE SODIUM [Suspect]
     Active Substance: CEFTRIAXONE SODIUM
     Indication: Colitis
     Route: 065
     Dates: start: 20240719, end: 20240721
  6. RACECADOTRIL [Suspect]
     Active Substance: RACECADOTRIL
     Indication: Product used for unknown indication
     Dosage: 100 MILLIGRAM, TID
     Route: 048
     Dates: start: 20240720, end: 20240721
  7. FLAGYL [Suspect]
     Active Substance: METRONIDAZOLE\METRONIDAZOLE HYDROCHLORIDE
     Indication: Colitis
     Dosage: 500 MILLIGRAM, TID
     Route: 040
     Dates: start: 20240719, end: 20240722
  8. ALBUTEROL [Suspect]
     Active Substance: ALBUTEROL
     Indication: Product used for unknown indication
     Dosage: 1 DOSAGE FORM, TID
     Route: 055
     Dates: start: 20240719, end: 20240722
  9. HUMALOG [Suspect]
     Active Substance: INSULIN LISPRO
     Indication: Diabetes mellitus
     Dosage: ON DEMAND
     Route: 040
     Dates: start: 20240719, end: 20240724

REACTIONS (3)
  - Eosinophilia [Recovering/Resolving]
  - Face oedema [Recovering/Resolving]
  - Rash pruritic [Recovering/Resolving]

NARRATIVE: CASE EVENT DATE: 20240729
